FAERS Safety Report 9587430 (Version 1)
Quarter: 2013Q4

REPORT INFORMATION
  Report Type: Report from Study
  Country: BR (occurrence: BR)
  Receive Date: 20131003
  Receipt Date: 20131003
  Transmission Date: 20140711
  Serious: Yes (Other)
  Sender: FDA-Public Use
  Company Number: PHHY2013BR108542

PATIENT
  Age: 51 Year
  Sex: Male
  Weight: 99 kg

DRUGS (9)
  1. INDACATEROL [Suspect]
     Indication: CHRONIC OBSTRUCTIVE PULMONARY DISEASE
     Dosage: 300 UG, QD
  2. MOMETASONE [Suspect]
     Indication: CHRONIC OBSTRUCTIVE PULMONARY DISEASE
     Dosage: 400 MG, QD
  3. TIOTROPIUM [Suspect]
     Indication: CHRONIC OBSTRUCTIVE PULMONARY DISEASE
     Dosage: 5 MG, QD
  4. CICLESONIDE [Suspect]
     Indication: CHRONIC OBSTRUCTIVE PULMONARY DISEASE
     Dosage: UNK UKN, UNK
  5. SALINE NASAL [Suspect]
     Indication: CHRONIC OBSTRUCTIVE PULMONARY DISEASE
     Dosage: UNK UKN, UNK
  6. METOPROLOL [Concomitant]
     Indication: HYPERTENSION
     Dosage: 50 MG, QD
  7. NICOTINE [Concomitant]
     Dosage: UNK UKN, UNK
  8. BUPROPION [Concomitant]
     Dosage: 150 MG, QD
  9. FENOTEROL\IPRATROPIUM [Concomitant]
     Indication: CHRONIC OBSTRUCTIVE PULMONARY DISEASE
     Dosage: UNK UKN, UNK

REACTIONS (7)
  - Left ventricular dysfunction [Unknown]
  - Left atrial dilatation [Unknown]
  - Macrocytosis [Unknown]
  - Poor quality sleep [Unknown]
  - Bronchial disorder [Unknown]
  - Cough [Unknown]
  - Wheezing [Unknown]
